FAERS Safety Report 5510591-5 (Version None)
Quarter: 2007Q4

REPORT INFORMATION
  Report Type: 
  Country: None (occurrence: None)
  Receive Date: 20071030
  Receipt Date: 20070529
  Transmission Date: 20080405
  Serious: Yes (Hospitalization, Other)
  Sender: FDA-Public Use
  Company Number: HQWYE168124JUL03

PATIENT
  Age: 60 Year
  Sex: Female
  Weight: 70.37 kg

DRUGS (3)
  1. PREMARIN [Suspect]
     Dosage: UNSPECIFIED, ORAL
     Route: 048
     Dates: start: 19990701, end: 19990701
  2. CYCRIN [Suspect]
     Dosage: UNSPECIFIED, ORAL
     Route: 048
     Dates: start: 19890701, end: 19990701
  3. PROVERA [Suspect]

REACTIONS (2)
  - CEREBROVASCULAR ACCIDENT [None]
  - PULMONARY EMBOLISM [None]
